FAERS Safety Report 5729157-7 (Version None)
Quarter: 2008Q2

REPORT INFORMATION
  Report Type: 
  Country: None (occurrence: None)
  Receive Date: 20080506
  Receipt Date: 20080425
  Transmission Date: 20081010
  Serious: Yes (Other)
  Sender: FDA-Public Use
  Company Number: US-PFIZER INC-2008036774

PATIENT
  Sex: Male

DRUGS (2)
  1. LIPITOR [Suspect]
  2. OMEGA-3 [Concomitant]
     Dosage: DAILY DOSE:1000MG

REACTIONS (3)
  - BLINDNESS [None]
  - VISION BLURRED [None]
  - VISUAL DISTURBANCE [None]
